FAERS Safety Report 10051356 (Version 1)
Quarter: 2014Q2

REPORT INFORMATION
  Report Type: Spontaneous
  Country: US (occurrence: US)
  Receive Date: 20140401
  Receipt Date: 20140401
  Transmission Date: 20141212
  Serious: No
  Sender: FDA-Public Use
  Company Number: US-PFIZER INC-2014087457

PATIENT
  Age: 64 Year
  Sex: Female
  Weight: 60.32 kg

DRUGS (1)
  1. ZITHROMAX [Suspect]
     Indication: BRONCHITIS
     Dosage: 5 ML, UNK
     Dates: start: 20140324

REACTIONS (1)
  - Abdominal discomfort [Unknown]
